FAERS Safety Report 21383914 (Version 2)
Quarter: 2022Q4

REPORT INFORMATION
  Report Type: Other
  Country: RO (occurrence: RO)
  Receive Date: 20220928
  Receipt Date: 20221020
  Transmission Date: 20230113
  Serious: Yes (Death)
  Sender: FDA-Public Use
  Company Number: RO-CELLTRION INC.-2022RO015618

PATIENT

DRUGS (3)
  1. RITUXIMAB [Suspect]
     Active Substance: RITUXIMAB
     Indication: Diffuse large B-cell lymphoma
     Dosage: 375 MG/SQM OF BODY AREA, SECOND ADMINISTRATION IN AUG/2022
     Route: 042
     Dates: start: 202207
  2. POLIVY [Suspect]
     Active Substance: POLATUZUMAB VEDOTIN-PIIQ
     Indication: Diffuse large B-cell lymphoma
     Dosage: 1.8MG/KG EVERY 21 DAYS DATE OF LAST ADMINISTRATION - AUG/2022, ONLY TWO ADMINISTRATIONS OF POLIVY
     Route: 042
     Dates: start: 202207
  3. BENDAMUSTINE [Suspect]
     Active Substance: BENDAMUSTINE
     Indication: Diffuse large B-cell lymphoma
     Dosage: 90 MG/BODY AREA, SECOND ADMINISTRATION IN AUG/2022
     Dates: start: 20220707

REACTIONS (1)
  - Death [Fatal]
